FAERS Safety Report 10789006 (Version 3)
Quarter: 2015Q3

REPORT INFORMATION
  Report Type: Spontaneous
  Country: US (occurrence: US)
  Receive Date: 20150212
  Receipt Date: 20150803
  Transmission Date: 20151125
  Serious: Yes (Other)
  Sender: FDA-Public Use
  Company Number: US-BAYER-2015-020299

PATIENT
  Age: 32 Year
  Sex: Female
  Weight: 68.27 kg

DRUGS (4)
  1. VITAMIN D [Concomitant]
     Active Substance: CHOLECALCIFEROL
     Dosage: UNK
     Dates: start: 20120124, end: 20120426
  2. MIRENA [Suspect]
     Active Substance: LEVONORGESTREL
     Indication: CONTRACEPTION
     Dosage: 20 MCG/24HR, CONT
     Route: 015
     Dates: start: 20100222, end: 20131113
  3. ATIVAN [Concomitant]
     Active Substance: LORAZEPAM
     Dosage: UNK
     Dates: start: 20120124, end: 20120426
  4. PAROXETINE [Concomitant]
     Active Substance: PAROXETINE\PAROXETINE HYDROCHLORIDE
     Dosage: 20 MG, UNK
     Dates: start: 20120124, end: 20120426

REACTIONS (15)
  - Drug ineffective [None]
  - Depression [None]
  - Pelvic pain [None]
  - Fear [None]
  - Internal injury [None]
  - Uterine perforation [None]
  - Emotional distress [None]
  - Medical device discomfort [None]
  - Abdominal pain [None]
  - Injury [None]
  - Anxiety [None]
  - Depressed mood [None]
  - Device difficult to use [None]
  - Genital haemorrhage [None]
  - Pregnancy with contraceptive device [None]

NARRATIVE: CASE EVENT DATE: 201303
